FAERS Safety Report 24156917 (Version 1)
Quarter: 2024Q3

REPORT INFORMATION
  Report Type: Spontaneous
  Country: BR (occurrence: BR)
  Receive Date: 20240731
  Receipt Date: 20240731
  Transmission Date: 20241016
  Serious: Yes (Other)
  Sender: AMGEN
  Company Number: BR-AMGEN-BRASP2024147845

PATIENT
  Age: 70 Year
  Sex: Female

DRUGS (1)
  1. PROLIA [Suspect]
     Active Substance: DENOSUMAB
     Indication: Osteoporosis
     Dosage: 60 MILLIGRAM, Q6MO,  1 SYRINGE OF 60MG
     Route: 058
     Dates: start: 202111, end: 202406

REACTIONS (4)
  - Thoracic vertebral fracture [Not Recovered/Not Resolved]
  - Lumbar vertebral fracture [Not Recovered/Not Resolved]
  - Inappropriate schedule of product administration [Unknown]
  - Therapy change [Unknown]

NARRATIVE: CASE EVENT DATE: 20240601
